FAERS Safety Report 24705543 (Version 1)
Quarter: 2024Q4

REPORT INFORMATION
  Report Type: Spontaneous
  Country: US (occurrence: US)
  Receive Date: 20241206
  Receipt Date: 20241206
  Transmission Date: 20250115
  Serious: No
  Sender: SANOFI AVENTIS
  Company Number: US-SA-2024SA359114

PATIENT
  Age: 43 Year
  Sex: Female
  Weight: 100 kg

DRUGS (6)
  1. DUPIXENT [Suspect]
     Active Substance: DUPILUMAB
     Indication: Dyshidrotic eczema
     Dosage: 300 MG, QOW
     Route: 058
  2. ZEPBOUND [Concomitant]
     Active Substance: TIRZEPATIDE
  3. CLONAZEPAM [Concomitant]
     Active Substance: CLONAZEPAM
  4. VITAMIN D [Concomitant]
     Active Substance: VITAMIN D NOS
  5. METFORMIN HYDROCHLORIDE [Concomitant]
     Active Substance: METFORMIN HYDROCHLORIDE
  6. AZELASTINE HYDROCHLORIDE [Concomitant]
     Active Substance: AZELASTINE HYDROCHLORIDE

REACTIONS (4)
  - Bone pain [Unknown]
  - Pruritus [Unknown]
  - Therapeutic response shortened [Unknown]
  - Product use in unapproved indication [Unknown]
